FAERS Safety Report 6040960-9 (Version None)
Quarter: 2009Q1

REPORT INFORMATION
  Report Type: 
  Country: None (occurrence: None)
  Receive Date: 20090116
  Receipt Date: 20080805
  Transmission Date: 20090719
  Serious: No
  Sender: FDA-Public Use
  Company Number: US-BRISTOL-MYERS SQUIBB COMPANY-14258651

PATIENT
  Age: 51 Year
  Sex: Male
  Weight: 77 kg

DRUGS (3)
  1. ABILIFY [Suspect]
     Indication: BIPOLAR DISORDER
     Dosage: TAKEN FOR APPROXIMATELY 10 DAYS.2.5 MG QD PRN.
     Route: 048
     Dates: start: 20080506
  2. VALIUM [Suspect]
     Dosage: TAKEN ON QHS FOR MANY YEARS
  3. LITHIUM CARBONATE [Suspect]
     Dosage: TAKEN FOR DECADES

REACTIONS (8)
  - AMNESIA [None]
  - ANOREXIA [None]
  - ANXIETY [None]
  - DISORIENTATION [None]
  - ENERGY INCREASED [None]
  - INDIFFERENCE [None]
  - INSOMNIA [None]
  - NERVOUSNESS [None]
